FAERS Safety Report 21017657 (Version 1)
Quarter: 2022Q2

REPORT INFORMATION
  Report Type: Spontaneous
  Country: US (occurrence: None)
  Receive Date: 20220627
  Receipt Date: 20220627
  Transmission Date: 20220720
  Serious: Yes (Other)
  Sender: FDA-Public Use
  Company Number: None

PATIENT
  Age: 58 Year
  Sex: Male
  Weight: 101.25 kg

DRUGS (1)
  1. EMGALITY [Suspect]
     Active Substance: GALCANEZUMAB-GNLM
     Indication: Migraine
     Dosage: OTHER FREQUENCY : 2 SHOTS FIRST MONT;?OTHER ROUTE : SHOTS STOMACH FATTY TISSUE;?
     Route: 050
     Dates: start: 20220625

REACTIONS (7)
  - Paralysis [None]
  - Movement disorder [None]
  - Speech disorder [None]
  - Arthralgia [None]
  - Back pain [None]
  - Gait disturbance [None]
  - Headache [None]

NARRATIVE: CASE EVENT DATE: 20220625
